FAERS Safety Report 25131518 (Version 1)
Quarter: 2025Q1

REPORT INFORMATION
  Report Type: Spontaneous
  Country: CN (occurrence: CN)
  Receive Date: 20250327
  Receipt Date: 20250327
  Transmission Date: 20250409
  Serious: Yes (Hospitalization, Other)
  Sender: PFIZER
  Company Number: CN-PFIZER INC-PV202500036398

PATIENT
  Age: 59 Year
  Sex: Male
  Weight: 66.5 kg

DRUGS (4)
  1. CYTARABINE [Suspect]
     Active Substance: CYTARABINE
     Indication: Neoplasm
     Dosage: 0.1 G, 2X/DAY
     Route: 058
     Dates: start: 20250228, end: 20250306
  2. CYTARABINE [Suspect]
     Active Substance: CYTARABINE
     Indication: Chemotherapy
  3. IDARUBICIN HYDROCHLORIDE [Suspect]
     Active Substance: IDARUBICIN HYDROCHLORIDE
     Indication: Neoplasm
     Dosage: 20 MG, 1X/DAY
     Route: 042
     Dates: start: 20250228, end: 20250228
  4. IDARUBICIN HYDROCHLORIDE [Suspect]
     Active Substance: IDARUBICIN HYDROCHLORIDE
     Indication: Chemotherapy
     Dosage: 10 MG, 1X/DAY
     Route: 042
     Dates: start: 20250301, end: 20250302

REACTIONS (2)
  - Myelosuppression [Not Recovered/Not Resolved]
  - Drug eruption [Not Recovered/Not Resolved]

NARRATIVE: CASE EVENT DATE: 20250301
